FAERS Safety Report 7349894-0 (Version None)
Quarter: 2011Q1

REPORT INFORMATION
  Report Type: 
  Country: None (occurrence: None)
  Receive Date: 20110314
  Receipt Date: 20110305
  Transmission Date: 20110831
  Serious: Yes (Other)
  Sender: FDA-Public Use
  Company Number: FR-BAXTER-2011BH005844

PATIENT

DRUGS (2)
  1. CYCLOPHOSPHAMIDE [Suspect]
     Indication: SARCOMA
     Route: 048
  2. PREDNISOLONE [Suspect]
     Indication: SARCOMA
     Route: 048

REACTIONS (1)
  - LYMPHOPENIA [None]
